FAERS Safety Report 8738355 (Version 1)
Quarter: 2012Q4

REPORT INFORMATION
  Report Type: 
  Country: US (occurrence: US)
  Receive Date: 20120828
  Receipt Date: 20120828
  Transmission Date: 20130627
  Serious: Yes (Hospitalization)
  Sender: FDA-Public Use
  Company Number: US-JNJFOC-20120705262

PATIENT
  Age: 47 Year
  Sex: Male

DRUGS (3)
  1. TOPAMAX [Suspect]
     Indication: HEADACHE
     Dosage: at bed time
     Route: 048
     Dates: start: 20120704
  2. TOPAMAX [Suspect]
     Indication: MIGRAINE PROPHYLAXIS
     Dosage: at bed time
     Route: 048
     Dates: start: 20120704
  3. ZOMIG [Concomitant]
     Route: 065

REACTIONS (8)
  - Respiratory rate increased [Recovered/Resolved]
  - Tachycardia [Recovered/Resolved]
  - Dizziness [Not Recovered/Not Resolved]
  - Vision blurred [Not Recovered/Not Resolved]
  - Heart rate decreased [Recovered/Resolved]
  - Malaise [Not Recovered/Not Resolved]
  - Fatigue [Not Recovered/Not Resolved]
  - Headache [Not Recovered/Not Resolved]
